FAERS Safety Report 13115668 (Version 3)
Quarter: 2018Q1

REPORT INFORMATION
  Report Type: Report from Study
  Country: US (occurrence: US)
  Receive Date: 20170114
  Receipt Date: 20180105
  Transmission Date: 20180508
  Serious: No
  Sender: FDA-Public Use
  Company Number: PHEH2017US001253

PATIENT
  Sex: Male

DRUGS (3)
  1. ILARIS [Suspect]
     Active Substance: CANAKINUMAB
     Dosage: UNK EVERY 2 MONTHS
     Route: 065
     Dates: start: 20171023
  2. ILARIS [Suspect]
     Active Substance: CANAKINUMAB
     Dosage: UNK EVERY 2 MONTHS
     Route: 065
     Dates: start: 20171228
  3. ILARIS [Suspect]
     Active Substance: CANAKINUMAB
     Indication: PRODUCT USED FOR UNKNOWN INDICATION
     Dosage: UNK, QMO
     Route: 058
     Dates: start: 20161007

REACTIONS (1)
  - Inappropriate schedule of drug administration [Recovered/Resolved]
